FAERS Safety Report 9225134 (Version 1)
Quarter: 2013Q2

REPORT INFORMATION
  Report Type: Report from Study
  Country: US (occurrence: US)
  Receive Date: 20130411
  Receipt Date: 20130411
  Transmission Date: 20140414
  Serious: No
  Sender: FDA-Public Use
  Company Number: US-VERTEX PHARMACEUTICALS INC.-2013-004712

PATIENT
  Sex: Female
  Weight: 85 kg

DRUGS (3)
  1. VX-950 (TELAPREVIR) [Suspect]
     Indication: HEPATITIS C
     Dosage: 750 MG, TID
     Route: 048
     Dates: start: 201303
  2. PEGASYS [Suspect]
     Indication: HEPATITIS C
     Dosage: 180 ?G, WEEKLY
     Route: 058
     Dates: start: 201303
  3. RIBAPAK [Suspect]
     Indication: HEPATITIS C
     Dosage: 600MG AM/ 400MG PM
     Route: 048
     Dates: start: 201303

REACTIONS (6)
  - Depression [Unknown]
  - Tongue discolouration [Unknown]
  - Dry mouth [Unknown]
  - Rectal discharge [Unknown]
  - Fatigue [Unknown]
  - Anal pruritus [Unknown]
